FAERS Safety Report 4272851-8 (Version None)
Quarter: 2004Q1

REPORT INFORMATION
  Report Type: 
  Country: None (occurrence: None)
  Receive Date: 20040114
  Receipt Date: 20040112
  Transmission Date: 20041129
  Serious: Yes (Death, Life-Threatening)
  Sender: FDA-Public Use
  Company Number: CAPT20040001

PATIENT
  Age: 24 Year
  Sex: Male

DRUGS (2)
  1. CAPTOPRIL 25 MG UNKNOWN [Suspect]
     Dosage: 40 TABS ONCE PO
     Route: 048
     Dates: start: 20020101, end: 20020101
  2. VERAPAMIL [Suspect]
     Dosage: 60 TABS ONCE OTHR
     Dates: start: 20020101, end: 20020101

REACTIONS (14)
  - ABDOMINAL DISTENSION [None]
  - BACK PAIN [None]
  - BLOOD CALCIUM DECREASED [None]
  - BLOOD PH DECREASED [None]
  - BRADYCARDIA [None]
  - HYPOTENSION [None]
  - MYDRIASIS [None]
  - OVERDOSE [None]
  - PUPILLARY LIGHT REFLEX TESTS ABNORMAL [None]
  - RESTLESSNESS [None]
  - SKIN DISCOLOURATION [None]
  - SUICIDE ATTEMPT [None]
  - URINE OUTPUT DECREASED [None]
  - VENTRICULAR FIBRILLATION [None]
